FAERS Safety Report 7605735-5 (Version None)
Quarter: 2011Q3

REPORT INFORMATION
  Report Type: 
  Country: None (occurrence: None)
  Receive Date: 20110713
  Receipt Date: 20110705
  Transmission Date: 20111222
  Serious: Yes (Other)
  Sender: FDA-Public Use
  Company Number: TR-NOVOPROD-329740

PATIENT
  Age: 8 Year
  Sex: Male
  Weight: 23 kg

DRUGS (5)
  1. TRANEXAMIC ACID [Concomitant]
     Indication: TOOTH EXTRACTION
     Dosage: 5 MG/KG
     Route: 048
     Dates: start: 20110414
  2. CEFTRIAXONE [Concomitant]
     Indication: URINARY TRACT INFECTION
     Dosage: 100 MG/KG
     Route: 042
     Dates: start: 20110427, end: 20110506
  3. TRANEXAMIC ACID [Concomitant]
     Indication: GINGIVAL BLEEDING
  4. NOVOSEVEN RT [Suspect]
     Indication: HAEMORRHAGE
     Dosage: 90 MCG/KG, 20 DOSES OF (90 MCG/KG)
     Route: 042
     Dates: start: 20110420, end: 20110429
  5. FERROGLYCINE SULFATE COMPLEX [Concomitant]
     Indication: IRON DEFICIENCY ANAEMIA
     Dosage: 5 MG/KG
     Route: 048
     Dates: start: 20110415, end: 20110506

REACTIONS (1)
  - HEPATIC ENZYME INCREASED [None]
